FAERS Safety Report 19020786 (Version 3)
Quarter: 2021Q4

REPORT INFORMATION
  Report Type: Report from Study
  Country: US (occurrence: US)
  Receive Date: 20210317
  Receipt Date: 20211019
  Transmission Date: 20220303
  Serious: No
  Sender: FDA-Public Use
  Company Number: US-TAKEDA-2021TUS014973

PATIENT
  Sex: Female
  Weight: 57 kg

DRUGS (19)
  1. CUVITRU [Suspect]
     Active Substance: HUMAN IMMUNOGLOBULIN G
     Indication: Immunodeficiency common variable
     Dosage: 16 GRAM, Q2WEEKS
     Route: 058
     Dates: start: 20170907
  2. CUVITRU [Suspect]
     Active Substance: HUMAN IMMUNOGLOBULIN G
     Dosage: 16 GRAM, Q2WEEKS
     Route: 058
     Dates: start: 20170907
  3. ACETAMINOPHEN [Concomitant]
     Active Substance: ACETAMINOPHEN
  4. DIPHENHYDRAMINE [Concomitant]
     Active Substance: DIPHENHYDRAMINE
  5. LIDOCAINE [Concomitant]
     Active Substance: LIDOCAINE
  6. EPINEPHRINE [Concomitant]
     Active Substance: EPINEPHRINE
  7. XANAX [Concomitant]
     Active Substance: ALPRAZOLAM
  8. WELLBUTRIN [Concomitant]
     Active Substance: BUPROPION HYDROCHLORIDE
  9. LAMICTAL XR [Concomitant]
     Active Substance: LAMOTRIGINE
  10. ESTRADIOL [Concomitant]
     Active Substance: ESTRADIOL
  11. BYSTOLIC [Concomitant]
     Active Substance: NEBIVOLOL HYDROCHLORIDE
  12. CALCIUM [Concomitant]
     Active Substance: CALCIUM
  13. HERBALS\TURMERIC [Concomitant]
     Active Substance: HERBALS\TURMERIC
  14. PROBIOTICS NOS [Concomitant]
     Active Substance: PROBIOTICS NOS
  15. PROGESTERONE [Concomitant]
     Active Substance: PROGESTERONE
  16. TESTOSTERONE [Concomitant]
     Active Substance: TESTOSTERONE
  17. TRAMADOL HYDROCHLORIDE [Concomitant]
     Active Substance: TRAMADOL HYDROCHLORIDE
  18. FISH OIL [Concomitant]
     Active Substance: FISH OIL
  19. VITAMIN D3 [Concomitant]
     Active Substance: CHOLECALCIFEROL

REACTIONS (5)
  - Pain [Unknown]
  - Abdominal mass [Unknown]
  - Fatigue [Unknown]
  - Infusion related reaction [Unknown]
  - Dehydration [Unknown]
